FAERS Safety Report 7318983-9 (Version None)
Quarter: 2011Q1

REPORT INFORMATION
  Report Type: 
  Country: None (occurrence: None)
  Receive Date: 20110218
  Receipt Date: 20110218
  Transmission Date: 20110831
  Serious: Yes (Hospitalization)
  Sender: FDA-Public Use
  Company Number: None

PATIENT
  Sex: Male
  Weight: 90 kg

DRUGS (2)
  1. TRIAMTERENE AND HYDROCHLOROTHIAZIDE [Suspect]
     Indication: HYPERTENSION
     Dosage: 37.5/25 ONCE DAILY ORAL
     Route: 048
     Dates: start: 20020101
  2. TRIAMTERENE AND HYDROCHLOROTHIAZIDE [Suspect]
     Indication: HYPERTENSION
     Dosage: 37.5/25 ONCE DAILY ORAL
     Route: 048
     Dates: start: 19950101

REACTIONS (3)
  - VOMITING [None]
  - HALLUCINATION [None]
  - BLOOD POTASSIUM DECREASED [None]
